FAERS Safety Report 20749918 (Version 4)
Quarter: 2022Q2

REPORT INFORMATION
  Report Type: Spontaneous
  Country: IT (occurrence: IT)
  Receive Date: 20220426
  Receipt Date: 20220606
  Transmission Date: 20220721
  Serious: Yes (Hospitalization, Other)
  Sender: FDA-Public Use
  Company Number: IT-Hikma Pharmaceuticals-IT-H14001-21-03630

PATIENT
  Age: 12 Year
  Sex: Male

DRUGS (12)
  1. BORTEZOMIB [Suspect]
     Active Substance: BORTEZOMIB
     Indication: Acute lymphocytic leukaemia recurrent
     Dosage: UNK (TOTAL CUMULATIVE DOSE 5.2 MG/MQ)
  2. BORTEZOMIB [Suspect]
     Active Substance: BORTEZOMIB
     Indication: T-cell type acute leukaemia
     Dosage: UNK
  3. BORTEZOMIB [Suspect]
     Active Substance: BORTEZOMIB
     Dosage: 1.3 MILLIGRAM/SQ. METER
     Dates: start: 20200605, end: 20200703
  4. ACETAMINOPHEN [Suspect]
     Active Substance: ACETAMINOPHEN
     Indication: Pain
     Dosage: UNK
  5. PREGABALIN [Suspect]
     Active Substance: PREGABALIN
     Indication: Pain
     Dosage: UNK
  6. TRAMADOL [Suspect]
     Active Substance: TRAMADOL
     Indication: Pain
     Dosage: UNK
  7. METHOTREXATE [Concomitant]
     Active Substance: METHOTREXATE
     Indication: Acute lymphocytic leukaemia recurrent
     Dosage: UNK
  8. METHOTREXATE [Concomitant]
     Active Substance: METHOTREXATE
     Dosage: UNK
     Route: 037
  9. VINCRISTINE [Concomitant]
     Active Substance: VINCRISTINE
     Indication: Acute lymphocytic leukaemia recurrent
     Dosage: UNK
  10. VINCRISTINE [Concomitant]
     Active Substance: VINCRISTINE
     Dosage: UNK
  11. TRAMADOL [Concomitant]
     Active Substance: TRAMADOL
     Indication: Pain
     Dosage: UNK
  12. ACETAMINOPHEN [Concomitant]
     Active Substance: ACETAMINOPHEN
     Indication: Pain
     Dosage: UNK

REACTIONS (8)
  - Guillain-Barre syndrome [Recovered/Resolved]
  - Demyelinating polyneuropathy [Recovered/Resolved]
  - Muscular weakness [Recovered/Resolved]
  - Asthenia [Recovered/Resolved]
  - Hypoaesthesia [Recovered/Resolved]
  - Gait disturbance [Recovered/Resolved]
  - Off label use [Recovered/Resolved]
  - Drug ineffective [Unknown]
